FAERS Safety Report 21696061 (Version 1)
Quarter: 2022Q4

REPORT INFORMATION
  Report Type: Spontaneous
  Country: US (occurrence: None)
  Receive Date: 20221207
  Receipt Date: 20221207
  Transmission Date: 20230112
  Serious: Yes (Life-Threatening)
  Sender: FDA-Public Use
  Company Number: None

PATIENT
  Age: 20 Year
  Sex: Female
  Weight: 67.05 kg

DRUGS (2)
  1. STELARA [Suspect]
     Active Substance: USTEKINUMAB
     Indication: Colitis ulcerative
     Dosage: OTHER FREQUENCY : ONE TIME IV DOSE;?
     Route: 041
     Dates: start: 20221207, end: 20221207
  2. STELARA [Concomitant]
     Active Substance: USTEKINUMAB
     Dates: start: 20221207, end: 20221207

REACTIONS (2)
  - Anaphylactic reaction [None]
  - Paranoia [None]

NARRATIVE: CASE EVENT DATE: 20221207
